FAERS Safety Report 7178956-6 (Version None)
Quarter: 2010Q4

REPORT INFORMATION
  Report Type: 
  Country: None (occurrence: None)
  Receive Date: 20101209
  Receipt Date: 20101122
  Transmission Date: 20110411
  Serious: Yes (Death, Hospitalization, Other)
  Sender: FDA-Public Use
  Company Number: 011990

PATIENT
  Age: 49 Year
  Sex: Male

DRUGS (5)
  1. BUSULFEX [Suspect]
     Indication: STEM CELL TRANSPLANT
     Dosage: 68 MG, DAILY DOSE, INTRAVENOUS ; 313 MG, DAILY DOSE, INTRAVENOUS
     Route: 042
     Dates: start: 20100923, end: 20100923
  2. BUSULFEX [Suspect]
     Indication: STEM CELL TRANSPLANT
     Dosage: 68 MG, DAILY DOSE, INTRAVENOUS ; 313 MG, DAILY DOSE, INTRAVENOUS
     Route: 042
     Dates: start: 20100929, end: 20101002
  3. ETOPOSIDE [Concomitant]
  4. CYCLOPHOSPHAMIDE [Concomitant]
  5. .. [Concomitant]

REACTIONS (8)
  - ABDOMINAL DISTENSION [None]
  - ACUTE RESPIRATORY DISTRESS SYNDROME [None]
  - ACUTE RESPIRATORY FAILURE [None]
  - BONE MARROW TRANSPLANT [None]
  - SEPTIC SHOCK [None]
  - TACHYCARDIA [None]
  - TACHYPNOEA [None]
  - VIRAL TEST POSITIVE [None]
